FAERS Safety Report 8914795 (Version 1)
Quarter: 2012Q4

REPORT INFORMATION
  Report Type: 
  Country: US (occurrence: US)
  Receive Date: 20121119
  Receipt Date: 20121119
  Transmission Date: 20130627
  Serious: No
  Sender: FDA-Public Use
  Company Number: US-ASTRAZENECA-2012SE85092

PATIENT
  Sex: Male

DRUGS (1)
  1. CRESTOR [Suspect]
     Indication: BLOOD CHOLESTEROL INCREASED
     Route: 048
     Dates: start: 2004, end: 2012

REACTIONS (4)
  - Confusional state [Unknown]
  - Mental impairment [Unknown]
  - Muscle atrophy [Unknown]
  - Memory impairment [Unknown]
